FAERS Safety Report 7332959-7 (Version None)
Quarter: 2011Q1

REPORT INFORMATION
  Report Type: 
  Country: None (occurrence: None)
  Receive Date: 20110304
  Receipt Date: 20090331
  Transmission Date: 20110831
  Serious: Yes (Death)
  Sender: FDA-Public Use
  Company Number: US-BAYER-200913592NA

PATIENT
  Sex: Male
  Weight: 98.413 kg

DRUGS (24)
  1. CYCLOSPORINE [Concomitant]
  2. CELLCEPT [Concomitant]
  3. RENAX [Concomitant]
  4. OMNISCAN [Suspect]
     Indication: NUCLEAR MAGNETIC RESONANCE IMAGING BRAIN
     Dosage: 30 ML, ONCE
     Dates: start: 20030714, end: 20030714
  5. MULTIHANCE [Suspect]
     Indication: NUCLEAR MAGNETIC RESONANCE IMAGING
  6. NORVASC [Concomitant]
  7. PREDNISONE [Concomitant]
  8. ZOLOFT [Concomitant]
  9. NEURONTIN [Concomitant]
  10. OPTIMARK [Suspect]
     Indication: NUCLEAR MAGNETIC RESONANCE IMAGING
  11. NIFEDIPINE [Concomitant]
  12. RENAGEL [Concomitant]
  13. OMNISCAN [Suspect]
     Indication: NUCLEAR MAGNETIC RESONANCE IMAGING
     Dosage: 20 ML, ONCE
     Dates: start: 19990802, end: 19990802
  14. PROHANCE [Suspect]
     Indication: NUCLEAR MAGNETIC RESONANCE IMAGING
  15. VALCYTE [Concomitant]
  16. LABETALOL HCL [Concomitant]
  17. TEMAZEPAM [Concomitant]
  18. CLONIDINE [Concomitant]
  19. MAGNEVIST [Suspect]
     Indication: NUCLEAR MAGNETIC RESONANCE IMAGING
     Dosage: 10 ML, ONCE
     Route: 042
     Dates: start: 20050310, end: 20050310
  20. MAGNEVIST [Suspect]
     Indication: NUCLEAR MAGNETIC RESONANCE IMAGING BRAIN
  21. METOPROLOL [Concomitant]
  22. EPOGEN [Concomitant]
  23. GABAPENTIN [Concomitant]
  24. LEVAQUIN [Concomitant]

REACTIONS (9)
  - FIBROSIS [None]
  - GENERAL PHYSICAL HEALTH DETERIORATION [None]
  - SCAR [None]
  - PAIN [None]
  - MOBILITY DECREASED [None]
  - EMOTIONAL DISTRESS [None]
  - ANXIETY [None]
  - NEPHROGENIC SYSTEMIC FIBROSIS [None]
  - ANHEDONIA [None]
